FAERS Safety Report 22213496 (Version 1)
Quarter: 2023Q2

REPORT INFORMATION
  Report Type: Spontaneous
  Country: CN (occurrence: CN)
  Receive Date: 20230414
  Receipt Date: 20230414
  Transmission Date: 20230722
  Serious: Yes (Hospitalization)
  Sender: FDA-Public Use
  Company Number: CN-NAPPMUNDI-GBR-2023-0106751

PATIENT
  Age: 68 Year
  Sex: Male
  Weight: 63 kg

DRUGS (2)
  1. OXYCODONE HYDROCHLORIDE [Suspect]
     Active Substance: OXYCODONE HYDROCHLORIDE
     Indication: Tumour pain
     Dosage: 10 MILLIGRAM, BID
     Route: 048
     Dates: start: 20230110, end: 20230311
  2. OXYCODONE HYDROCHLORIDE [Concomitant]
     Active Substance: OXYCODONE HYDROCHLORIDE
     Indication: Tumour pain
     Dosage: 40 MILLIGRAM, BID
     Route: 048
     Dates: start: 20230227, end: 20230311

REACTIONS (2)
  - Abdominal pain [Recovering/Resolving]
  - Gallbladder enlargement [Recovering/Resolving]

NARRATIVE: CASE EVENT DATE: 20230311
